FAERS Safety Report 18506370 (Version 3)
Quarter: 2021Q1

REPORT INFORMATION
  Report Type: Report from Study
  Country: US (occurrence: US)
  Receive Date: 20201116
  Receipt Date: 20210204
  Transmission Date: 20210419
  Serious: Yes (Other)
  Sender: FDA-Public Use
  Company Number: US-SHIRE-US202015628

PATIENT
  Age: 70 Year
  Sex: Female
  Weight: 63.95 kg

DRUGS (2)
  1. GAMMAGARD LIQUID [Suspect]
     Active Substance: HUMAN IMMUNOGLOBULIN G
     Indication: IMMUNODEFICIENCY COMMON VARIABLE
     Dosage: 16 GRAM, 1X/2WKS
     Route: 065
  2. GAMMAGARD LIQUID [Suspect]
     Active Substance: HUMAN IMMUNOGLOBULIN G
     Indication: PRIMARY IMMUNODEFICIENCY SYNDROME

REACTIONS (24)
  - Fatigue [Unknown]
  - Vision blurred [Unknown]
  - Choroid neoplasm [Unknown]
  - Anxiety [Unknown]
  - Asymptomatic COVID-19 [Unknown]
  - Depressed mood [Unknown]
  - Plantar fasciitis [Recovering/Resolving]
  - Fasting [Recovered/Resolved]
  - Hip arthroplasty [Unknown]
  - Oesophageal disorder [Unknown]
  - Malignant melanoma [Unknown]
  - Corneal dystrophy [Unknown]
  - Oedema peripheral [Recovering/Resolving]
  - Anaemia [Unknown]
  - Squamous cell carcinoma [Unknown]
  - Dermatitis [Unknown]
  - Product dose omission issue [Unknown]
  - Tendonitis [Recovering/Resolving]
  - Weight increased [Recovering/Resolving]
  - Insomnia [Unknown]
  - Feeling abnormal [Recovering/Resolving]
  - Blood glucose decreased [Recovered/Resolved]
  - Hypersensitivity [Unknown]
  - Condition aggravated [Unknown]

NARRATIVE: CASE EVENT DATE: 202001
